FAERS Safety Report 10048065 (Version 2)
Quarter: 2014Q2

REPORT INFORMATION
  Report Type: Report from Study
  Country: JP (occurrence: JP)
  Receive Date: 20140331
  Receipt Date: 20140411
  Transmission Date: 20141212
  Serious: Yes (Hospitalization, Other)
  Sender: FDA-Public Use
  Company Number: JP-TAKEDA-2014TJP004305

PATIENT
  Age: 89 Year
  Sex: Male

DRUGS (6)
  1. ALOGLIPTIN [Suspect]
     Indication: TYPE 2 DIABETES MELLITUS
     Dosage: 25 MG, QD
     Route: 048
     Dates: start: 20121121, end: 20130107
  2. AMARYL [Concomitant]
     Indication: TYPE 2 DIABETES MELLITUS
     Dosage: 1 MG, 1 DAYS
     Route: 048
  3. BISOLVON [Concomitant]
     Dosage: UNK
     Route: 048
  4. MERISLON [Concomitant]
     Dosage: UNK
     Route: 048
  5. ALDACTONE A [Concomitant]
     Dosage: UNK
     Route: 048
  6. BUFFERIN                           /00009201/ [Concomitant]
     Dosage: UNK
     Route: 048

REACTIONS (1)
  - Interstitial lung disease [Recovering/Resolving]
